FAERS Safety Report 25604591 (Version 1)
Quarter: 2025Q3

REPORT INFORMATION
  Report Type: Report from Study
  Country: EU (occurrence: EU)
  Receive Date: 20250725
  Receipt Date: 20250725
  Transmission Date: 20251021
  Serious: Yes (Other)
  Sender: AUROBINDO
  Company Number: EU-AUROBINDO-AUR-APL-2025-037920

PATIENT
  Sex: Female

DRUGS (2)
  1. DICLOFENAC [Suspect]
     Active Substance: DICLOFENAC
     Indication: Polyarthritis
     Route: 065
  2. ACEMETACIN [Suspect]
     Active Substance: ACEMETACIN
     Indication: Polyarthritis
     Route: 048

REACTIONS (4)
  - Foetal death [Unknown]
  - Cardiac disorder [Unknown]
  - Oligohydramnios [Unknown]
  - Exposure during pregnancy [Unknown]
